FAERS Safety Report 12854488 (Version 1)
Quarter: 2016Q4

REPORT INFORMATION
  Report Type: Spontaneous
  Country: US (occurrence: US)
  Receive Date: 20161017
  Receipt Date: 20161017
  Transmission Date: 20170207
  Serious: No
  Sender: FDA-Public Use
  Company Number: US-BAXALTA-2016BLT007227

PATIENT
  Age: 59 Year
  Sex: Female
  Weight: 54.5 kg

DRUGS (6)
  1. CEFADROXIL. [Concomitant]
     Active Substance: CEFADROXIL
     Indication: PROPHYLAXIS
     Dosage: 500 MG, EVERY 12 HOURS
     Route: 048
     Dates: start: 20150724
  2. BENADRYL [Concomitant]
     Active Substance: DIPHENHYDRAMINE HYDROCHLORIDE
     Indication: PREMEDICATION
     Dosage: 25-50 MG, 1X A MONTH
     Route: 048
     Dates: start: 20140707
  3. LEXAPRO [Concomitant]
     Active Substance: ESCITALOPRAM OXALATE
     Indication: ANTIDEPRESSANT THERAPY
     Dosage: 20 MG, 1X A DAY
     Route: 048
     Dates: start: 20140707
  4. ACETAMINOPHEN. [Concomitant]
     Active Substance: ACETAMINOPHEN
     Indication: PREMEDICATION
     Dosage: 500 MG, 1X A MONTH
     Route: 048
     Dates: start: 20140707
  5. HYQVIA [Suspect]
     Active Substance: HUMAN IMMUNOGLOBULIN G\HYALURONIDASE RECOMBINANT HUMAN
     Indication: IMMUNODEFICIENCY
     Dosage: 40 G, 1X A MONTH
     Route: 058
     Dates: start: 201412
  6. ASPIRIN (E.C.) [Concomitant]
     Active Substance: ASPIRIN
     Indication: ANTIPLATELET THERAPY
     Dosage: 81 MG, 1X A DAY
     Route: 048
     Dates: start: 20140707

REACTIONS (5)
  - Nausea [Recovered/Resolved]
  - Dizziness [Recovered/Resolved]
  - Infusion site reaction [Recovered/Resolved]
  - Infusion site papule [Recovered/Resolved]
  - Device malfunction [Recovered/Resolved]

NARRATIVE: CASE EVENT DATE: 20161001
